FAERS Safety Report 6726443-9 (Version None)
Quarter: 2010Q2

REPORT INFORMATION
  Report Type: 
  Country: None (occurrence: None)
  Receive Date: 20100514
  Receipt Date: 20100405
  Transmission Date: 20101027
  Serious: Yes (Death, Other)
  Sender: FDA-Public Use
  Company Number: US-BAXTER-2010BH001897

PATIENT
  Age: 62 Year
  Sex: Male

DRUGS (3)
  1. HEPARIN SODIUM INJECTION [Suspect]
     Indication: HAEMODIALYSIS
     Route: 042
     Dates: start: 20071229, end: 20080202
  2. HEPARIN SODIUM INJECTION [Suspect]
     Route: 042
     Dates: start: 20071229, end: 20080202
  3. HEPARIN SODIUM INJECTION [Suspect]
     Route: 042
     Dates: start: 20071229, end: 20080202

REACTIONS (12)
  - ABDOMINAL PAIN UPPER [None]
  - ANGIOEDEMA [None]
  - ARTERIOSCLEROSIS [None]
  - ASTHENIA [None]
  - CHEST PAIN [None]
  - CONFUSIONAL STATE [None]
  - DEPRESSION [None]
  - HYPOTENSION [None]
  - INCONTINENCE [None]
  - MENTAL STATUS CHANGES [None]
  - RENAL FAILURE CHRONIC [None]
  - VOMITING [None]
